FAERS Safety Report 5627580-2 (Version None)
Quarter: 2008Q1

REPORT INFORMATION
  Report Type: 
  Country: None (occurrence: None)
  Receive Date: 20080215
  Receipt Date: 20080207
  Transmission Date: 20080703
  Serious: Yes (Hospitalization, Other)
  Sender: FDA-Public Use
  Company Number: BR-JNJFOC-20071109342

PATIENT
  Age: 34 Year
  Sex: Female

DRUGS (4)
  1. REMICADE [Suspect]
     Indication: PSORIATIC ARTHROPATHY
     Route: 042
  2. METHOTREXATE [Concomitant]
     Indication: PSORIATIC ARTHROPATHY
  3. AZATHIOPRINE [Concomitant]
  4. CORTICOIDS [Concomitant]

REACTIONS (5)
  - ANAEMIA [None]
  - DIARRHOEA INFECTIOUS [None]
  - POLYMYOSITIS [None]
  - PULMONARY VASCULITIS [None]
  - SINUS TACHYCARDIA [None]
